FAERS Safety Report 5273920-6 (Version None)
Quarter: 2007Q1

REPORT INFORMATION
  Report Type: 
  Country: None (occurrence: None)
  Receive Date: 20061219
  Receipt Date: 20061016
  Transmission Date: 20070707
  Serious: Yes (Hospitalization)
  Sender: FDA-Public Use
  Company Number: US-JNJFOC-20061004218

PATIENT
  Age: 28 Year
  Sex: Female
  Weight: 72.5755 kg

DRUGS (2)
  1. ORTHO EVRA [Suspect]
     Indication: CONTRACEPTION
     Dosage: , 1 IN 1 WEEK, TRANSDERMAL
     Route: 062
     Dates: start: 20030101, end: 20050827
  2. ALBUTEROL [Concomitant]

REACTIONS (1)
  - CEREBRAL INFARCTION [None]
